FAERS Safety Report 9239548 (Version 2)
Quarter: 2013Q2

REPORT INFORMATION
  Report Type: Spontaneous
  Country: US (occurrence: US)
  Receive Date: 20130418
  Receipt Date: 20130527
  Transmission Date: 20140414
  Serious: No
  Sender: FDA-Public Use
  Company Number: US-PFIZER INC-2013117721

PATIENT
  Sex: Female
  Weight: 53.52 kg

DRUGS (5)
  1. ADVIL MIGRAINE [Suspect]
     Indication: HEADACHE
     Dosage: 200 MG, AS NEEDED
     Dates: start: 20130412
  2. ADVIL MIGRAINE [Suspect]
     Indication: NECK PAIN
  3. ASPIRIN ^BAYER^ [Concomitant]
     Indication: HEADACHE
     Dosage: 325 MG, AS NEEDED
  4. ASPIRIN ^BAYER^ [Concomitant]
     Indication: MIGRAINE
  5. ACTONEL [Concomitant]
     Indication: BONE DISORDER
     Dosage: UNK, AS NEEDED

REACTIONS (1)
  - Dysphagia [Unknown]
